FAERS Safety Report 8716400 (Version 3)
Quarter: 2013Q4

REPORT INFORMATION
  Report Type: Spontaneous
  Country: US (occurrence: US)
  Receive Date: 20120810
  Receipt Date: 20131101
  Transmission Date: 20140711
  Serious: No
  Sender: FDA-Public Use
  Company Number: US-009507513-1208USA001024

PATIENT
  Age: 66 Year
  Sex: Female
  Weight: 76.19 kg

DRUGS (9)
  1. MIRALAX [Suspect]
     Indication: CONSTIPATION
     Dosage: UNK, QD
     Route: 048
     Dates: start: 20120716
  2. MIRALAX [Suspect]
     Dosage: 17 G, UNK
     Route: 048
     Dates: start: 20120705, end: 20120713
  3. ZOLOFT [Concomitant]
     Indication: ANXIETY
     Dosage: UNK, UNKNOWN
  4. MOBIC [Concomitant]
     Indication: MONARTHRITIS
     Dosage: UNK, UNKNOWN
  5. OMEGA-3 MARINE TRIGLYCERIDES [Concomitant]
     Indication: BLOOD CHOLESTEROL
     Dosage: UNK, UNKNOWN
  6. SIMVASTATIN [Concomitant]
     Indication: BLOOD CHOLESTEROL
     Dosage: UNK, UNKNOWN
  7. ASPIRIN [Concomitant]
     Indication: BLOOD CHOLESTEROL
     Dosage: 81 MG, UNKNOWN
  8. CALCIUM (UNSPECIFIED) (+) VITAMIN D (UNSPECIFIED) [Concomitant]
     Indication: PRODUCT USED FOR UNKNOWN INDICATION
     Dosage: UNK, UNKNOWN
  9. CHOLECALCIFEROL [Concomitant]
     Indication: PRODUCT USED FOR UNKNOWN INDICATION
     Dosage: UNK, UNKNOWN

REACTIONS (1)
  - Dyspepsia [Recovered/Resolved]
